FAERS Safety Report 8273027-X (Version None)
Quarter: 2012Q2

REPORT INFORMATION
  Report Type: 
  Country: None (occurrence: None)
  Receive Date: 20120411
  Receipt Date: 20120405
  Transmission Date: 20120825
  Serious: No
  Sender: FDA-Public Use
  Company Number: US-PFIZER INC-2012087129

PATIENT
  Sex: Female

DRUGS (4)
  1. ORENCIA [Concomitant]
     Dosage: UNK
  2. VALSARTAN [Concomitant]
     Dosage: UNK
  3. ARAVA [Concomitant]
     Dosage: UNK
  4. NORVASC [Suspect]
     Dosage: 10 MG, 1X/DAY

REACTIONS (1)
  - JOINT INJURY [None]
